FAERS Safety Report 18307109 (Version 1)
Quarter: 2020Q3

REPORT INFORMATION
  Report Type: Spontaneous
  Country: US (occurrence: US)
  Receive Date: 20200924
  Receipt Date: 20200924
  Transmission Date: 20201103
  Serious: No
  Sender: FDA-Public Use
  Company Number: US-SHIRE-US202031166

PATIENT
  Sex: Female
  Weight: 41 kg

DRUGS (4)
  1. GATTEX [Suspect]
     Active Substance: TEDUGLUTIDE\WATER
     Indication: SHORT-BOWEL SYNDROME
     Dosage: 1.7 MILLIGRAM
     Route: 065
     Dates: start: 20200417
  2. GATTEX [Suspect]
     Active Substance: TEDUGLUTIDE\WATER
     Indication: SHORT-BOWEL SYNDROME
     Dosage: 1.7 MILLIGRAM
     Route: 065
     Dates: start: 20200417
  3. GATTEX [Suspect]
     Active Substance: TEDUGLUTIDE\WATER
     Indication: SHORT-BOWEL SYNDROME
     Dosage: 1.7 MILLIGRAM
     Route: 065
     Dates: start: 20200417
  4. GATTEX [Suspect]
     Active Substance: TEDUGLUTIDE\WATER
     Indication: SHORT-BOWEL SYNDROME
     Dosage: 1.7 MILLIGRAM
     Route: 065
     Dates: start: 20200417

REACTIONS (1)
  - Injection site bruising [Unknown]
